FAERS Safety Report 22599613 (Version 1)
Quarter: 2023Q2

REPORT INFORMATION
  Report Type: Other
  Country: IT (occurrence: None)
  Receive Date: 20230614
  Receipt Date: 20230614
  Transmission Date: 20230722
  Serious: No
  Sender: FDA-Public Use
  Company Number: IT-ROCHE-3201310

PATIENT
  Age: 31 Year
  Sex: Male

DRUGS (14)
  1. OCRELIZUMAB [Suspect]
     Active Substance: OCRELIZUMAB
     Indication: Relapsing-remitting multiple sclerosis
     Route: 042
     Dates: start: 20191108, end: 20191122
  2. OCRELIZUMAB [Suspect]
     Active Substance: OCRELIZUMAB
     Route: 042
     Dates: start: 20200706, end: 20200706
  3. OCRELIZUMAB [Suspect]
     Active Substance: OCRELIZUMAB
     Route: 042
     Dates: start: 20210113, end: 20210113
  4. OCRELIZUMAB [Suspect]
     Active Substance: OCRELIZUMAB
     Route: 042
     Dates: start: 20210623, end: 20210623
  5. OCRELIZUMAB [Suspect]
     Active Substance: OCRELIZUMAB
     Route: 042
     Dates: start: 20220214, end: 20220214
  6. OCRELIZUMAB [Suspect]
     Active Substance: OCRELIZUMAB
     Route: 042
     Dates: start: 20220824, end: 20220824
  7. OCRELIZUMAB [Suspect]
     Active Substance: OCRELIZUMAB
     Route: 042
     Dates: start: 20230227, end: 20230227
  8. OCRELIZUMAB [Suspect]
     Active Substance: OCRELIZUMAB
     Route: 042
     Dates: start: 20191122, end: 20191122
  9. TRIMEBUTINA [Concomitant]
     Route: 048
     Dates: start: 20201225
  10. GASTROPIU [Concomitant]
     Route: 048
     Dates: start: 20201225
  11. COMIRNATY [Concomitant]
     Active Substance: TOZINAMERAN
     Indication: Prophylaxis
     Dosage: DOSE 1U
     Route: 030
     Dates: start: 20220110, end: 20220110
  12. CITALOPRAM [Concomitant]
     Active Substance: CITALOPRAM HYDROBROMIDE
     Dosage: 1 TABLET
     Route: 048
  13. HALDOL [Concomitant]
     Active Substance: HALOPERIDOL
     Route: 048
  14. LORMETAZEPAM [Concomitant]
     Active Substance: LORMETAZEPAM
     Route: 048

REACTIONS (1)
  - COVID-19 [Recovered/Resolved]

NARRATIVE: CASE EVENT DATE: 20220110
